FAERS Safety Report 10272072 (Version 2)
Quarter: 2014Q3

REPORT INFORMATION
  Report Type: Spontaneous
  Country: US (occurrence: US)
  Receive Date: 20140702
  Receipt Date: 20140918
  Transmission Date: 20150326
  Serious: Yes (Other)
  Sender: FDA-Public Use
  Company Number: US-009507513-1406USA013593

PATIENT
  Age: 23 Year
  Sex: Female
  Weight: 76.19 kg

DRUGS (1)
  1. NEXPLANON [Suspect]
     Active Substance: ETONOGESTREL
     Indication: CONTRACEPTION
     Dosage: 1 SINGLE ROD
     Route: 059
     Dates: start: 201304, end: 201402

REACTIONS (1)
  - Weight increased [Recovering/Resolving]

NARRATIVE: CASE EVENT DATE: 201304
